FAERS Safety Report 15868025 (Version 4)
Quarter: 2019Q3

REPORT INFORMATION
  Report Type: Report from Study
  Country: DE (occurrence: DE)
  Receive Date: 20190125
  Receipt Date: 20190927
  Transmission Date: 20191004
  Serious: Yes (Death, Life-Threatening, Hospitalization, Other)
  Sender: FDA-Public Use
  Company Number: DE-PFIZER INC-2019030335

PATIENT
  Age: 67 Year
  Sex: Female
  Weight: 61 kg

DRUGS (21)
  1. EXJADE [Suspect]
     Active Substance: DEFERASIROX
     Dosage: 4 DF, QD (16.8MG/KG BODYWEIGHT/DAY)
     Dates: start: 20161202, end: 20170105
  2. PALBOCICLIB [Suspect]
     Active Substance: PALBOCICLIB
     Indication: BREAST CANCER
     Dosage: 125 OT, QD (1-0-0)
     Dates: start: 20170220, end: 20170912
  3. EXJADE [Suspect]
     Active Substance: DEFERASIROX
     Dosage: 2 DF, QD (10 MG/KG BODYWEIGHT/DAY)
     Dates: start: 20170220, end: 20170809
  4. EXJADE [Suspect]
     Active Substance: DEFERASIROX
     Dosage: 2 DF, QD (14 MG/KG BODYWEIGHT/DAY AT 360 MG)
     Route: 065
     Dates: start: 20170810, end: 20170817
  5. ERYPO [EPOETIN ALFA] [Concomitant]
     Indication: METASTASES TO BONE
     Dosage: 84 U, (84 U/DAY, EVERY 7 DAYS)
     Route: 065
     Dates: start: 20141125, end: 20160114
  6. PALBOCICLIB [Suspect]
     Active Substance: PALBOCICLIB
     Dosage: 100 OT, QD (1-0-0)
     Dates: start: 20170913, end: 20171106
  7. PALBOCICLIB [Suspect]
     Active Substance: PALBOCICLIB
     Dosage: 100 OT, QD (1-0-0)
     Dates: start: 20171205, end: 20180110
  8. EXJADE [Suspect]
     Active Substance: DEFERASIROX
     Dosage: 2 DF, QD (360 MG) (14 MG/KG BODYWEIGHT/DAY)
     Route: 065
     Dates: start: 20171107
  9. TORASEMIDE [Concomitant]
     Active Substance: TORSEMIDE
     Indication: OEDEMA PERIPHERAL
     Dosage: 10 MG, QD (1-0-0)
     Route: 065
     Dates: start: 20160916
  10. FASLODEX [Concomitant]
     Active Substance: FULVESTRANT
     Indication: METASTASES TO BONE
     Dosage: 500 MG, QMO (500MG/ DAY, EVERY 28 DAYS)
     Route: 065
     Dates: start: 20130705
  11. EXEMESTAN [Concomitant]
     Active Substance: EXEMESTANE
     Indication: METASTASES TO BONE
     Dosage: 25 MG, QD
     Route: 065
     Dates: start: 20160626
  12. GABAPENTIN. [Concomitant]
     Active Substance: GABAPENTIN
     Indication: NEUROPATHY PERIPHERAL
     Dosage: 1800 MG, QD
     Route: 065
  13. EXJADE [Suspect]
     Active Substance: DEFERASIROX
     Dosage: 1 DF, QD (4MG/KG BODYWEIGHT/DAY)
     Dates: start: 20170106, end: 20170219
  14. EXJADE [Suspect]
     Active Substance: DEFERASIROX
     Dosage: 1 DF, QD (7 MG/KG BODYWEIGHT/DAY AT 360 MG)
     Route: 065
     Dates: start: 20170828, end: 20171106
  15. EXJADE [Suspect]
     Active Substance: DEFERASIROX
     Indication: IRON OVERLOAD
     Dosage: 1 DF (250 MG), QD (4MG/KG BODYWEIGHT/DAY )
     Dates: start: 20160504, end: 20160816
  16. XGEVA [Concomitant]
     Active Substance: DENOSUMAB
     Indication: METASTASES TO BONE
     Dosage: 120 MG, QMO (120MG/ DAY, EVERY 28 DAYS)
     Route: 065
     Dates: start: 20150212, end: 20160504
  17. AFINITOR [Concomitant]
     Active Substance: EVEROLIMUS
     Indication: METASTASES TO BONE
     Dosage: 1 DF, QD (10 MG PER DAY)
     Route: 065
     Dates: start: 20160613
  18. ZOMETA [Concomitant]
     Active Substance: ZOLEDRONIC ACID
     Indication: METASTASES TO BONE
     Dosage: 4 MG, QMO (4MG/ DAY, EVERY 28 DAYS)
     Route: 042
     Dates: start: 20130222, end: 20150115
  19. EXJADE [Suspect]
     Active Substance: DEFERASIROX
     Dosage: 2 DF, QD (8.3MG/KG BODYWEIGHT/DAY = 2 TABLETS A 250 MG/D)
     Dates: start: 20160817, end: 20161201
  20. INNOHEP [Concomitant]
     Active Substance: TINZAPARIN SODIUM
     Indication: PRODUCT USED FOR UNKNOWN INDICATION
     Dosage: 1 DF, QD (1-0-0)
     Route: 065
     Dates: start: 20171205
  21. IBRANCE [Concomitant]
     Active Substance: PALBOCICLIB
     Indication: BREAST CANCER
     Dosage: 125 OT, QD (1-0-0)
     Route: 065
     Dates: start: 20170220, end: 20180110

REACTIONS (10)
  - Polyneuropathy [Not Recovered/Not Resolved]
  - Influenza like illness [Recovered/Resolved]
  - Paraneoplastic syndrome [Recovered/Resolved]
  - Neoplasm progression [Unknown]
  - Renal failure [Recovered/Resolved]
  - Febrile infection [Recovered/Resolved]
  - Pulmonary embolism [Recovering/Resolving]
  - Febrile infection [Recovered/Resolved]
  - Death [Fatal]
  - Blood creatinine increased [Recovered/Resolved]

NARRATIVE: CASE EVENT DATE: 201701
